FAERS Safety Report 24593932 (Version 1)
Quarter: 2024Q4

REPORT INFORMATION
  Report Type: Spontaneous
  Country: US (occurrence: None)
  Receive Date: 20241108
  Receipt Date: 20241108
  Transmission Date: 20250115
  Serious: Yes (Hospitalization)
  Sender: Public
  Company Number: None

PATIENT
  Age: 14 Year
  Sex: Female

DRUGS (5)
  1. ZENPEP [Suspect]
     Active Substance: PANCRELIPASE AMYLASE\PANCRELIPASE LIPASE\PANCRELIPASE PROTEASE
     Indication: Cystic fibrosis
     Dosage: OTHER FREQUENCY : 5CAPSBYMOUTHW/MEALS;?
     Dates: start: 20210409
  2. ALBUTEROL SULFATE [Concomitant]
     Active Substance: ALBUTEROL SULFATE
  3. INSULIN OLAR SOL 100U/ML [Concomitant]
  4. MULTI-VITAMN TAB [Concomitant]
  5. SODIUM CHLORIDE [Concomitant]

REACTIONS (2)
  - Sinus disorder [None]
  - Cholelithiasis [None]
